FAERS Safety Report 25050896 (Version 1)
Quarter: 2025Q1

REPORT INFORMATION
  Report Type: Spontaneous
  Country: US (occurrence: None)
  Receive Date: 20250307
  Receipt Date: 20250307
  Transmission Date: 20250409
  Serious: No
  Sender: FDA-CTU
  Company Number: None

PATIENT

DRUGS (2)
  1. METOPROLOL [Suspect]
     Active Substance: METOPROLOL
  2. OFEV [Suspect]
     Active Substance: NINTEDANIB

REACTIONS (4)
  - Fatigue [None]
  - Asthenia [None]
  - Blood pressure increased [None]
  - Pneumonia [None]
